FAERS Safety Report 11796108 (Version 1)
Quarter: 2015Q4

REPORT INFORMATION
  Report Type: Spontaneous
  Country: DE (occurrence: DE)
  Receive Date: 20151203
  Receipt Date: 20151203
  Transmission Date: 20160305
  Serious: No
  Sender: FDA-Public Use
  Company Number: DE-GLENMARK PHARMACEUTICALS INC, USA.-2015GMK014594

PATIENT

DRUGS (5)
  1. SEROQUEL [Concomitant]
     Active Substance: QUETIAPINE FUMARATE
     Indication: HUNTINGTON^S DISEASE
     Dosage: UNK
  2. VALPROATE [Concomitant]
     Active Substance: VALPROATE SODIUM
     Indication: HUNTINGTON^S DISEASE
     Dosage: UNK
  3. VENLAFAXIN [Concomitant]
     Active Substance: VENLAFAXINE HYDROCHLORIDE
     Indication: HUNTINGTON^S DISEASE
     Dosage: UNK
  4. LITHIUM. [Concomitant]
     Active Substance: LITHIUM
     Indication: HUNTINGTON^S DISEASE
     Dosage: UNK
  5. PRAMIPEXOLE. [Suspect]
     Active Substance: PRAMIPEXOLE
     Indication: HUNTINGTON^S DISEASE
     Dosage: UNK

REACTIONS (1)
  - Off label use [Unknown]
